FAERS Safety Report 19916632 (Version 1)
Quarter: 2021Q4

REPORT INFORMATION
  Report Type: Spontaneous
  Country: DE (occurrence: DE)
  Receive Date: 20211005
  Receipt Date: 20211005
  Transmission Date: 20220303
  Serious: Yes (Congenital Anomaly)
  Sender: FDA-Public Use
  Company Number: DE-EMBRYOTOX-202101243

PATIENT
  Age: 1 Day
  Sex: Female
  Weight: 2.81 kg

DRUGS (6)
  1. LAMOTRIGINE [Suspect]
     Active Substance: LAMOTRIGINE
     Indication: Product used for unknown indication
     Dosage: 525 (MG/D (BIS 500))/ INITIAL 500MG DAILY, DOSAGE INCREASED TO 525MG DAILY
     Route: 064
     Dates: start: 20200508, end: 20210129
  2. LAMOTRIGINE [Suspect]
     Active Substance: LAMOTRIGINE
     Route: 064
     Dates: start: 20200508, end: 20210129
  3. GRIPPEIMPFSTOFF [Concomitant]
     Active Substance: INFLUENZA VIRUS VACCINE
     Indication: Product used for unknown indication
     Route: 064
  4. METHYLDOPA [Concomitant]
     Active Substance: METHYLDOPA
     Indication: Product used for unknown indication
     Dosage: 1000 (MG/D)/ 500-250-250MG DAILY
     Route: 064
  5. IMPFSTOFF POLIO/IMPFSTOFF PERTUSSIS/IMPFSTOFF DIPHTHERIE [Concomitant]
     Indication: Product used for unknown indication
     Route: 064
  6. FOLIC ACID [Concomitant]
     Active Substance: FOLIC ACID
     Indication: Product used for unknown indication
     Route: 064
     Dates: start: 20200508, end: 20210129

REACTIONS (3)
  - Cleft palate [Not Recovered/Not Resolved]
  - Retrognathia [Unknown]
  - Foetal exposure during pregnancy [Unknown]

NARRATIVE: CASE EVENT DATE: 20210129
